FAERS Safety Report 13559302 (Version 1)
Quarter: 2017Q2

REPORT INFORMATION
  Report Type: Spontaneous
  Country: IT (occurrence: IT)
  Receive Date: 20170518
  Receipt Date: 20170518
  Transmission Date: 20170830
  Serious: Yes (Other)
  Sender: FDA-Public Use
  Company Number: IT-PFIZER INC-2017216656

PATIENT
  Age: 89 Year
  Sex: Female

DRUGS (8)
  1. LYRICA [Suspect]
     Active Substance: PREGABALIN
  2. ZANEDIP [Concomitant]
     Active Substance: LERCANIDIPINE HYDROCHLORIDE
  3. STILNOX [Suspect]
     Active Substance: ZOLPIDEM TARTRATE
  4. PLAUNAZIDE [Concomitant]
     Active Substance: HYDROCHLOROTHIAZIDE\OLMESARTAN MEDOXOMIL
  5. CARDIOASPIRIN [Concomitant]
     Active Substance: ASPIRIN
  6. NEULEPTIL /00038401/ [Suspect]
     Active Substance: PERICIAZINE
  7. PANTORC [Concomitant]
     Active Substance: PANTOPRAZOLE SODIUM
  8. METFORMINA TEVA [Concomitant]
     Active Substance: METFORMIN HYDROCHLORIDE

REACTIONS (4)
  - Dizziness [Recovering/Resolving]
  - Gait disturbance [Recovering/Resolving]
  - Drop attacks [Recovering/Resolving]
  - Toxicity to various agents [Recovering/Resolving]

NARRATIVE: CASE EVENT DATE: 20170324
